FAERS Safety Report 10399224 (Version 1)
Quarter: 2014Q1

REPORT INFORMATION
  Report Type: Spontaneous
  Country: US (occurrence: None)
  Receive Date: 20130815
  Receipt Date: 20130815
  Transmission Date: 20141002
  Serious: Yes (Other)
  Sender: FDA-Public Use
  Company Number: ADR-2013-00790

PATIENT
  Age: 63 Year
  Sex: Male

DRUGS (4)
  1. BACLOFEN INTRATHECAL [Suspect]
     Indication: PAIN
  2. FENTANYL [Concomitant]
  3. DILAUDID (HYDROMORPHONE) [Concomitant]
  4. BUPIVACAINE [Concomitant]

REACTIONS (4)
  - Blood pressure increased [None]
  - Drug withdrawal syndrome [None]
  - Influenza like illness [None]
  - Malaise [None]
